FAERS Safety Report 13681072 (Version 1)
Quarter: 2017Q2

REPORT INFORMATION
  Report Type: Spontaneous
  Country: US (occurrence: US)
  Receive Date: 20170623
  Receipt Date: 20170623
  Transmission Date: 20170830
  Serious: Yes (Hospitalization, Other)
  Sender: FDA-Public Use
  Company Number: US-TEVA-779605ACC

PATIENT
  Age: 26 Year
  Sex: Female
  Weight: 73 kg

DRUGS (1)
  1. PARAGARD T 380A [Suspect]
     Active Substance: COPPER
     Indication: CONTRACEPTION
     Dates: start: 20170428, end: 20170510

REACTIONS (5)
  - Abdominal adhesions [Unknown]
  - Dysmenorrhoea [Unknown]
  - Device dislocation [Recovered/Resolved]
  - Fallopian tube cyst [Recovered/Resolved]
  - Uterine disorder [Unknown]

NARRATIVE: CASE EVENT DATE: 20170614
